FAERS Safety Report 8483652-9 (Version None)
Quarter: 2012Q3

REPORT INFORMATION
  Report Type: 
  Country: None (occurrence: None)
  Receive Date: 20120702
  Receipt Date: 20120620
  Transmission Date: 20120928
  Serious: Yes (Other)
  Sender: FDA-Public Use
  Company Number: GB-MYLANLABS-2012S1012521

PATIENT
  Age: 69 Year
  Sex: Male

DRUGS (1)
  1. TACROLIMUS [Suspect]
     Indication: PRODUCT USED FOR UNKNOWN INDICATION
     Route: 048
     Dates: start: 20120101

REACTIONS (7)
  - NEUROTOXICITY [None]
  - DEPRESSION [None]
  - GAIT DISTURBANCE [None]
  - HALLUCINATION [None]
  - SLOW SPEECH [None]
  - MENTAL IMPAIRMENT [None]
  - HYPERSOMNIA [None]
